FAERS Safety Report 25703859 (Version 1)
Quarter: 2025Q3

REPORT INFORMATION
  Report Type: Spontaneous
  Country: US (occurrence: US)
  Receive Date: 20250820
  Receipt Date: 20250820
  Transmission Date: 20251021
  Serious: No
  Sender: GLAXOSMITHKLINE
  Company Number: US-GSK-US2025AMR096358

PATIENT
  Sex: Female
  Weight: 74.376 kg

DRUGS (2)
  1. BENLYSTA [Suspect]
     Active Substance: BELIMUMAB
     Indication: Systemic lupus erythematosus
     Dosage: 720 MG, Q4W
  2. BENLYSTA [Suspect]
     Active Substance: BELIMUMAB
     Indication: Fibromyalgia

REACTIONS (4)
  - Alopecia [Unknown]
  - Amnesia [Unknown]
  - Burning sensation [Unknown]
  - Muscle disorder [Unknown]
